FAERS Safety Report 4831991-2 (Version None)
Quarter: 2005Q4

REPORT INFORMATION
  Report Type: 
  Country: None (occurrence: None)
  Receive Date: 20051116
  Receipt Date: 20051104
  Transmission Date: 20060501
  Serious: Yes (Hospitalization)
  Sender: FDA-Public Use
  Company Number: GXKR2005DE01925

PATIENT
  Age: 83 Year
  Sex: Male

DRUGS (7)
  1. VERAPAMIL [Suspect]
     Indication: TACHYARRHYTHMIA
     Dosage: 120 MG, QD,
  2. COLCHICUM JTL LIQ [Suspect]
     Indication: GOUT
     Dosage: 2 MG IN TWO DAYS, ORAL
     Route: 048
  3. DICLOFENAC (DICLOFENAC) [Concomitant]
  4. FUROSEMIDE [Concomitant]
  5. ASPIRIN [Concomitant]
  6. AMBROXOL (AMOBROXOL) [Concomitant]
  7. THEOPHYLLINE [Concomitant]

REACTIONS (8)
  - BLOOD BRAIN BARRIER DEFECT [None]
  - BLOOD CREATINE PHOSPHOKINASE INCREASED [None]
  - DRUG INTERACTION [None]
  - DRUG LEVEL INCREASED [None]
  - GUILLAIN-BARRE SYNDROME [None]
  - IMMOBILE [None]
  - MUSCULAR WEAKNESS [None]
  - QUADRIPARESIS [None]
